FAERS Safety Report 23024473 (Version 1)
Quarter: 2023Q4

REPORT INFORMATION
  Report Type: Spontaneous
  Country: US (occurrence: US)
  Receive Date: 20231004
  Receipt Date: 20231004
  Transmission Date: 20240110
  Serious: Yes (Hospitalization, Other)
  Sender: FDA-Public Use
  Company Number: US-OPELLA-2023OHG009408

PATIENT
  Age: 38 Year
  Sex: Female

DRUGS (4)
  1. DIPHENHYDRAMINE [Suspect]
     Active Substance: DIPHENHYDRAMINE
     Indication: Product used for unknown indication
     Dosage: TOOK 50-60 TABLETS OF DIPHENHYDRAMINE OF UNKNOWN DOSE WITHIN THE LAST 24 HOURS, WITH HER MOST RECENT
     Route: 048
  2. DIAZEPAM [Concomitant]
     Active Substance: DIAZEPAM
     Indication: Product used for unknown indication
     Route: 065
  3. VENLAFAXINE [Concomitant]
     Active Substance: VENLAFAXINE HYDROCHLORIDE
     Indication: Product used for unknown indication
     Dosage: 150 MG EVERY MORNING
     Route: 065
  4. VENLAFAXINE [Concomitant]
     Active Substance: VENLAFAXINE HYDROCHLORIDE
     Dosage: 75 MG EVERY EVENING
     Route: 065

REACTIONS (8)
  - Abdominal pain [Unknown]
  - Nausea [Unknown]
  - Anxiety [Unknown]
  - Urinary retention [Unknown]
  - Agitation [Unknown]
  - Mydriasis [Unknown]
  - Intentional overdose [Unknown]
  - Exposure during pregnancy [Unknown]
